FAERS Safety Report 10009785 (Version 1)
Quarter: 2014Q1

REPORT INFORMATION
  Report Type: Spontaneous
  Country: US (occurrence: US)
  Receive Date: 20140312
  Receipt Date: 20140312
  Transmission Date: 20141002
  Serious: No
  Sender: FDA-Public Use
  Company Number: US-INCYTE CORPORATION-2013IN000305

PATIENT
  Age: 81 Year
  Sex: Male

DRUGS (3)
  1. JAKAFI [Suspect]
     Indication: MYELOFIBROSIS
     Dosage: NOT SPECIFIED (HIGHER INITIAL DOSE)
     Route: 048
     Dates: end: 20120403
  2. JAKAFI [Suspect]
     Indication: POLYCYTHAEMIA VERA
     Dosage: 5 MG, BID (SKIPPED ONE DOSE ON 12FEB2013)
     Route: 048
     Dates: start: 20120404, end: 20130212
  3. JAKAFI [Suspect]
     Dosage: 5 MG, BID
     Route: 048
     Dates: start: 20130213

REACTIONS (2)
  - Anaemia [Unknown]
  - Drug dose omission [Unknown]
